FAERS Safety Report 6782063-1 (Version None)
Quarter: 2010Q2

REPORT INFORMATION
  Report Type: 
  Country: None (occurrence: None)
  Receive Date: 20100621
  Receipt Date: 20100609
  Transmission Date: 20101027
  Serious: Yes (Hospitalization)
  Sender: FDA-Public Use
  Company Number: B0659712A

PATIENT
  Sex: Male

DRUGS (3)
  1. ZOPHREN [Suspect]
     Dosage: 8MG CYCLIC
     Route: 048
     Dates: start: 20100506, end: 20100527
  2. TOMUDEX [Suspect]
     Indication: COLON CANCER
     Dosage: 5MG CYCLIC
     Route: 042
     Dates: start: 20100506, end: 20100527
  3. ELOXATIN [Suspect]
     Indication: COLON CANCER
     Dosage: 200MG CYCLIC
     Route: 042
     Dates: start: 20100506, end: 20100527

REACTIONS (4)
  - BLOOD GLUCOSE DECREASED [None]
  - PAROTID GLAND ENLARGEMENT [None]
  - PAROTITIS [None]
  - SALIVARY GLAND PAIN [None]
